FAERS Safety Report 4501710-8 (Version None)
Quarter: 2004Q3

REPORT INFORMATION
  Report Type: 
  Country: None (occurrence: None)
  Receive Date: 20040927
  Receipt Date: 20040326
  Transmission Date: 20050211
  Serious: No
  Sender: FDA-Public Use
  Company Number: USA040363330

PATIENT
  Age: 53 Year
  Sex: Male
  Weight: 88 kg

DRUGS (5)
  1. STRATTERA [Suspect]
     Indication: ATTENTION DEFICIT/HYPERACTIVITY DISORDER
     Dosage: 40 MG
     Dates: start: 20040325, end: 20040325
  2. STRATTERA [Suspect]
     Indication: DEPRESSION
     Dosage: 40 MG
     Dates: start: 20040325, end: 20040325
  3. DIOVAN [Concomitant]
  4. ZETIA [Concomitant]
  5. ETODOLAC [Concomitant]

REACTIONS (7)
  - COLD SWEAT [None]
  - DISTURBANCE IN ATTENTION [None]
  - DRY MOUTH [None]
  - FATIGUE [None]
  - HEARING IMPAIRED [None]
  - HEART RATE INCREASED [None]
  - MYDRIASIS [None]
